FAERS Safety Report 12046874 (Version 1)
Quarter: 2016Q1

REPORT INFORMATION
  Report Type: Report from Study
  Country: US (occurrence: US)
  Receive Date: 20160209
  Receipt Date: 20160209
  Transmission Date: 20160526
  Serious: Yes (Other)
  Sender: FDA-Public Use
  Company Number: US-AMGEN-USASL2016012807

PATIENT
  Age: 50 Year
  Sex: Female

DRUGS (1)
  1. ENBREL [Suspect]
     Active Substance: ETANERCEPT
     Indication: RHEUMATOID ARTHRITIS
     Dosage: 50 MG, QWK
     Route: 065

REACTIONS (9)
  - Polymyositis [Unknown]
  - Cardiac failure [Unknown]
  - Blood insulin increased [Unknown]
  - Asthenia [Unknown]
  - Therapeutic response unexpected [Unknown]
  - Activities of daily living impaired [Unknown]
  - Influenza [Unknown]
  - Condition aggravated [Recovering/Resolving]
  - Shoulder operation [Recovered/Resolved]

NARRATIVE: CASE EVENT DATE: 2012
